FAERS Safety Report 8854881 (Version 2)
Quarter: 2012Q4

REPORT INFORMATION
  Report Type: 
  Country: US (occurrence: US)
  Receive Date: 20121023
  Receipt Date: 20121119
  Transmission Date: 20130627
  Serious: Yes (Other)
  Sender: FDA-Public Use
  Company Number: US-PFIZER INC-2012257883

PATIENT
  Sex: Female

DRUGS (7)
  1. LYRICA [Suspect]
     Indication: PAIN MANAGEMENT
     Dosage: 50 mg, daily
     Dates: start: 20121004, end: 20121007
  2. LYRICA [Suspect]
     Dosage: 50 mg, 2x/day
     Dates: start: 20121008, end: 20121010
  3. LYRICA [Suspect]
     Dosage: 50 mg, 3x/day
     Dates: start: 20121011
  4. ADDERALL XR [Suspect]
     Dosage: UNK
  5. BENICAR [Concomitant]
     Indication: BLOOD PRESSURE ABNORMAL
     Dosage: 40 mg, daily
  6. BYSTOLIC [Concomitant]
     Indication: BLOOD PRESSURE ABNORMAL
     Dosage: 10 mg, daily
  7. HYDROCHLOROTHIAZIDE [Concomitant]
     Indication: FLUID RETENTION
     Dosage: UNK

REACTIONS (3)
  - Oedema peripheral [Not Recovered/Not Resolved]
  - Weight increased [Not Recovered/Not Resolved]
  - Pruritus [Unknown]
